FAERS Safety Report 21817077 (Version 1)
Quarter: 2023Q1

REPORT INFORMATION
  Report Type: Spontaneous
  Country: ES (occurrence: ES)
  Receive Date: 20230104
  Receipt Date: 20230104
  Transmission Date: 20230417
  Serious: Yes (Hospitalization)
  Sender: FDA-Public Use
  Company Number: None

PATIENT
  Age: 82 Year
  Sex: Male

DRUGS (8)
  1. QUETIAPINE [Suspect]
     Active Substance: QUETIAPINE
     Indication: Psychomotor hyperactivity
     Dosage: 100 MG, Q24H
     Route: 048
     Dates: start: 20220621, end: 20220727
  2. BISOPROLOL [Concomitant]
     Active Substance: BISOPROLOL
     Indication: Hypertension
     Dosage: 2.5 MG, QD (28 TABLET)
     Route: 048
     Dates: start: 20220601
  3. RISPERIDONE [Concomitant]
     Active Substance: RISPERIDONE
     Indication: Senile dementia
     Dosage: 1 MG, 100 ML BOTTLE
     Route: 048
     Dates: start: 20220531
  4. ALPHAGAN P [Concomitant]
     Active Substance: BRIMONIDINE TARTRATE
     Indication: Glaucoma
     Dosage: UNK (2.0 GTS C/12 H, 1 BOTTLE OF 5ML)
     Dates: start: 20110429
  5. ACETAMINOPHEN [Concomitant]
     Active Substance: ACETAMINOPHEN
     Indication: Spinal osteoarthritis
     Dosage: 1 G, Q8H (40 TABLETS)
     Route: 048
     Dates: start: 20110429
  6. TAMSULOSIN HYDROCHLORIDE [Concomitant]
     Active Substance: TAMSULOSIN HYDROCHLORIDE
     Indication: Oedema
     Dosage: 0.4 MG, Q4H (30 TABLETS)
     Route: 048
     Dates: start: 20220601
  7. LOSARTAN [Concomitant]
     Active Substance: LOSARTAN
     Indication: Senile dementia
     Dosage: 50 MG, QD
     Route: 048
     Dates: start: 20220601
  8. ASPIRIN [Concomitant]
     Active Substance: ASPIRIN
     Indication: Senile dementia
     Dosage: 100 MG CO (30 TABLETS)
     Route: 048
     Dates: start: 20220601

REACTIONS (2)
  - Cognitive disorder [Recovered/Resolved]
  - Pyrexia [Recovered/Resolved]

NARRATIVE: CASE EVENT DATE: 20220724
